FAERS Safety Report 22208903 (Version 1)
Quarter: 2023Q2

REPORT INFORMATION
  Report Type: Other
  Country: US (occurrence: US)
  Receive Date: 20230413
  Receipt Date: 20230413
  Transmission Date: 20230721
  Serious: Yes (Death)
  Sender: FDA-Public Use
  Company Number: US-TRAVERE-2022TVT00615

PATIENT
  Age: 2 Month
  Sex: Female

DRUGS (1)
  1. CHOLIC ACID [Suspect]
     Active Substance: CHOLIC ACID
     Indication: Jaundice neonatal
     Route: 048
     Dates: start: 20221208

REACTIONS (1)
  - Death [Fatal]

NARRATIVE: CASE EVENT DATE: 20221218
